FAERS Safety Report 8478351-3 (Version None)
Quarter: 2012Q2

REPORT INFORMATION
  Report Type: 
  Country: None (occurrence: None)
  Receive Date: 20120629
  Receipt Date: 20120619
  Transmission Date: 20120825
  Serious: Yes (Hospitalization)
  Sender: FDA-Public Use
  Company Number: US-BAYER-2012-062414

PATIENT
  Age: 50 Year
  Sex: Female

DRUGS (4)
  1. CIPROFLOXACIN [Concomitant]
     Dosage: 250 MG, UNK
     Route: 048
  2. PHENAZOPYRIDINE HCL TAB [Concomitant]
     Dosage: 100 MG, UNK
     Route: 048
  3. LISINOPRIL [Concomitant]
     Indication: HYPERTENSION
     Dosage: 10 MG, UNK
     Route: 048
  4. YAZ [Suspect]
     Indication: MENOPAUSAL SYMPTOMS

REACTIONS (1)
  - DEEP VEIN THROMBOSIS [None]
